FAERS Safety Report 19483828 (Version 1)
Quarter: 2021Q3

REPORT INFORMATION
  Report Type: Spontaneous
  Country: US (occurrence: US)
  Receive Date: 20210701
  Receipt Date: 20210701
  Transmission Date: 20211014
  Serious: No
  Sender: FDA-Public Use
  Company Number: US-BAUSCH-BL-2021-019906

PATIENT
  Sex: Male

DRUGS (1)
  1. JUBLIA [Suspect]
     Active Substance: EFINACONAZOLE
     Indication: ONYCHOMYCOSIS
     Dosage: FOR ABOUT 3 YEARS
     Route: 061

REACTIONS (3)
  - Disease recurrence [Not Recovered/Not Resolved]
  - Product use issue [Unknown]
  - Onychomycosis [Not Recovered/Not Resolved]
